FAERS Safety Report 8798795 (Version 1)
Quarter: 2012Q4

REPORT INFORMATION
  Report Type: Spontaneous
  Country: US (occurrence: None)
  Receive Date: 20120917
  Receipt Date: 20120917
  Transmission Date: 20130627
  Serious: Yes (Other)
  Sender: FDA-Public Use
  Company Number: None

PATIENT
  Age: 42 Year
  Sex: Female
  Weight: 104.33 kg

DRUGS (1)
  1. ICY HOT [Suspect]
     Dosage: Light roll on once top
     Route: 061
     Dates: start: 20120901, end: 20120901

REACTIONS (1)
  - Thermal burn [None]
